FAERS Safety Report 7413130-7 (Version None)
Quarter: 2011Q2

REPORT INFORMATION
  Report Type: 
  Country: None (occurrence: None)
  Receive Date: 20110413
  Receipt Date: 20110405
  Transmission Date: 20111010
  Serious: Yes (Hospitalization, Other)
  Sender: FDA-Public Use
  Company Number: RO-ABBOTT-11P-135-0695056-00

PATIENT
  Sex: Male
  Weight: 70 kg

DRUGS (2)
  1. SULFASALAZINE [Concomitant]
     Indication: ANKYLOSING SPONDYLITIS
     Dosage: 3 G DAILY
     Route: 048
     Dates: start: 20080801, end: 20101118
  2. HUMIRA [Suspect]
     Indication: ANKYLOSING SPONDYLITIS
     Route: 058
     Dates: start: 20100920, end: 20101118

REACTIONS (21)
  - PERITONEAL TUBERCULOSIS [None]
  - ANAEMIA [None]
  - DEPRESSION [None]
  - FATIGUE [None]
  - PYREXIA [None]
  - LYMPHOMA [None]
  - NIGHT SWEATS [None]
  - ANKYLOSING SPONDYLITIS [None]
  - DISSEMINATED TUBERCULOSIS [None]
  - BUNDLE BRANCH BLOCK RIGHT [None]
  - NAUSEA [None]
  - ABDOMINAL PAIN UPPER [None]
  - WEIGHT DECREASED [None]
  - ASTHENIA [None]
  - LYMPH NODE TUBERCULOSIS [None]
  - DOLICHOCOLON [None]
  - CYTOLYTIC HEPATITIS [None]
  - TUBERCULOSIS GASTROINTESTINAL [None]
  - SPLEEN TUBERCULOSIS [None]
  - ACUTE PRERENAL FAILURE [None]
  - COUGH [None]
